FAERS Safety Report 4660761-3 (Version None)
Quarter: 2005Q2

REPORT INFORMATION
  Report Type: 
  Country: None (occurrence: None)
  Receive Date: 20050427
  Receipt Date: 20040316
  Transmission Date: 20051028
  Serious: Yes (Hospitalization)
  Sender: FDA-Public Use
  Company Number: US-JNJFOC-20031203767

PATIENT
  Age: 30 Year
  Sex: Male
  Weight: 92.0802 kg

DRUGS (10)
  1. ULTRAM [Suspect]
     Indication: BACK PAIN
     Dosage: 50 MG, ORAL
     Route: 048
     Dates: start: 20020518, end: 20031021
  2. PREVACID (TABLETS) LANSOPRAZOLE [Concomitant]
  3. NORFLEX [Concomitant]
  4. PAXIL [Concomitant]
  5. PREVENTIL (SALBUTAMOL) INHALATION [Concomitant]
  6. ACETAMINOPHEN [Concomitant]
  7. ADVAIR DISKUS (SERETIDE MITE) [Concomitant]
  8. VIOXX [Concomitant]
  9. DARVOCET [Concomitant]
  10. ADVIL [Concomitant]

REACTIONS (2)
  - CONVULSION [None]
  - OVERDOSE [None]
